FAERS Safety Report 19450817 (Version 1)
Quarter: 2021Q2

REPORT INFORMATION
  Report Type: Report from Study
  Country: None (occurrence: BE)
  Receive Date: 20210622
  Receipt Date: 20210622
  Transmission Date: 20210717
  Serious: Yes (Hospitalization)
  Sender: FDA-Public Use
  Company Number: BE-ABBVIE-21K-013-3961042-00

PATIENT
  Sex: Female
  Weight: 56 kg

DRUGS (13)
  1. DUODOPA [Suspect]
     Active Substance: CARBIDOPA\LEVODOPA
     Indication: PARKINSON^S DISEASE
     Route: 050
     Dates: start: 20150928
  2. DUODOPA [Suspect]
     Active Substance: CARBIDOPA\LEVODOPA
     Dosage: MD 11.5 ML; CD 2.9 ML/H; ED 3.5 ML DURING 16 HRS
     Route: 050
     Dates: start: 20201030
  3. PROLOPA HBS [Concomitant]
     Active Substance: BENSERAZIDE\LEVODOPA
     Indication: PRODUCT USED FOR UNKNOWN INDICATION
     Dosage: AT 22:30 AND 4:00
  4. DUODOPA [Suspect]
     Active Substance: CARBIDOPA\LEVODOPA
     Dosage: MD 11.0 ML; CD 3.1 ML/H; ED 3.5 ML DURING 16 HRS
     Route: 050
     Dates: start: 20200915, end: 20200917
  5. ASAFLOW [Concomitant]
     Active Substance: ASPIRIN
     Indication: PRODUCT USED FOR UNKNOWN INDICATION
     Dosage: AT 18:00
  6. AZILECT [Concomitant]
     Active Substance: RASAGILINE MESYLATE
     Indication: PRODUCT USED FOR UNKNOWN INDICATION
     Dosage: AT 8:00
  7. DAFALGAN [Concomitant]
     Active Substance: ACETAMINOPHEN
     Indication: PRODUCT USED FOR UNKNOWN INDICATION
     Dosage: DURING DAYTIME
  8. PROLOPA [Concomitant]
     Active Substance: BENSERAZIDE\LEVODOPA
     Indication: PRODUCT USED FOR UNKNOWN INDICATION
     Dosage: AT 8:00
  9. PROLOPA [Concomitant]
     Active Substance: BENSERAZIDE\LEVODOPA
     Indication: PRODUCT USED FOR UNKNOWN INDICATION
     Dosage: AT 6:30
  10. PROLOPA [Concomitant]
     Active Substance: BENSERAZIDE\LEVODOPA
     Dosage: AT 10.30, 13:30, 16:30, 19:30
  11. DUODOPA [Suspect]
     Active Substance: CARBIDOPA\LEVODOPA
     Dosage: MD 11.0 ML; CD 2.9 ML/H; ED 3.5 ML DURING 16 HRS
     Route: 050
     Dates: start: 20200904, end: 20200915
  12. DUODOPA [Suspect]
     Active Substance: CARBIDOPA\LEVODOPA
     Dosage: MD 11.5 ML; CD 3.1 ML/H; ED 3.5 ML DURING 16 HRS
     Route: 050
     Dates: start: 20200917, end: 20201030
  13. KEPPRA [Concomitant]
     Active Substance: LEVETIRACETAM
     Indication: PRODUCT USED FOR UNKNOWN INDICATION
     Dosage: AT 8:00 AND 20:00

REACTIONS (1)
  - Back pain [Unknown]
